FAERS Safety Report 9364469 (Version 2)
Quarter: 2013Q3

REPORT INFORMATION
  Report Type: Report from Study
  Country: DE (occurrence: DE)
  Receive Date: 20130624
  Receipt Date: 20130701
  Transmission Date: 20140515
  Serious: Yes (Death, Life-Threatening, Hospitalization)
  Sender: FDA-Public Use
  Company Number: DE-PFIZER INC-2013184590

PATIENT
  Age: 85 Year
  Sex: Male
  Weight: 91.9 kg

DRUGS (20)
  1. SOMAVERT [Suspect]
     Indication: ACROMEGALY
     Dosage: 10 MG, EVERY OTHER 2ND DAY
     Dates: start: 20080709
  2. INSPRA [Concomitant]
     Indication: HYPERTENSION
     Dosage: UNK
     Dates: start: 20091125
  3. TORASEMIDE [Concomitant]
     Indication: HYPERTENSION
     Dosage: UNK
     Dates: start: 20091125
  4. MOLSIDOMIN [Concomitant]
     Indication: HYPERTENSION
     Dosage: UNK
     Dates: start: 20091125
  5. METOHEXAL [Concomitant]
     Indication: HYPERTENSION
     Dosage: UNK
     Dates: start: 20091125
  6. L-THYROXIN [Concomitant]
     Indication: BLOOD THYROID STIMULATING HORMONE
     Dosage: UNK
     Dates: start: 20080709
  7. RAMIPRIL [Concomitant]
     Indication: HYPERTENSION
     Dosage: UNK
     Dates: start: 20091125
  8. SIMVASTATIN [Concomitant]
     Indication: LIPIDS ABNORMAL
     Dosage: UNK
     Dates: start: 20091125
  9. CLOPIDOGREL [Concomitant]
     Dosage: UNK
     Dates: start: 20091125
  10. AMLODIPINE [Concomitant]
     Indication: HYPERTENSION
     Dosage: UNK
     Dates: start: 20080709
  11. ASS [Concomitant]
     Dosage: UNK
     Dates: start: 20080709
  12. HYDROCORTISONE [Concomitant]
     Indication: ADRENOCORTICOTROPIC HORMONE DEFICIENCY
     Dosage: UNK
     Dates: start: 20091125
  13. LOCOL [Concomitant]
     Indication: LIPIDS ABNORMAL
     Dosage: UNK
     Dates: start: 20080709
  14. QUINAPRIL [Concomitant]
     Indication: HYPERTENSION
     Dosage: UNK
     Dates: start: 20080709
  15. AZULFIDINE [Concomitant]
     Dosage: UNK
     Dates: start: 20080709
  16. METFORMIN [Concomitant]
     Indication: DIABETES MELLITUS
     Dosage: UNK
     Dates: start: 20080709
  17. OCTREOTIDE [Concomitant]
     Dosage: UNK
     Dates: start: 200103
  18. OCTREOTIDE [Concomitant]
     Dosage: UNK
     Dates: start: 200109
  19. OCTREOTIDE [Concomitant]
     Dosage: UNK
     Dates: start: 200409, end: 200806
  20. CABERGOLINE [Concomitant]
     Dosage: UNK
     Dates: start: 200209

REACTIONS (1)
  - Death [Fatal]
